FAERS Safety Report 6105095-5 (Version None)
Quarter: 2009Q1

REPORT INFORMATION
  Report Type: 
  Country: None (occurrence: None)
  Receive Date: 20090306
  Receipt Date: 20090225
  Transmission Date: 20090719
  Serious: Yes (Death, Other)
  Sender: FDA-Public Use
  Company Number: US-AVENTIS-200911543US

PATIENT
  Age: 30 Year
  Sex: Male
  Weight: 290.3 kg

DRUGS (1)
  1. LOVENOX [Suspect]

REACTIONS (1)
  - PULMONARY EMBOLISM [None]
